FAERS Safety Report 9407978 (Version 1)
Quarter: 2013Q3

REPORT INFORMATION
  Report Type: Spontaneous
  Country: US (occurrence: US)
  Receive Date: 20130718
  Receipt Date: 20130718
  Transmission Date: 20140515
  Serious: Yes (Other)
  Sender: FDA-Public Use
  Company Number: US-TEVA-419377USA

PATIENT
  Age: 73 Year
  Sex: Female

DRUGS (1)
  1. ANASTROZOLE [Suspect]

REACTIONS (11)
  - Neoplasm malignant [Unknown]
  - Hip surgery [Unknown]
  - Knee operation [Unknown]
  - Breast operation [Unknown]
  - Weight increased [Unknown]
  - Impaired healing [Unknown]
  - Depression [Unknown]
  - Hunger [Unknown]
  - Dry skin [Unknown]
  - Psoriasis [Unknown]
  - Vulvovaginal dryness [Unknown]
